FAERS Safety Report 24116091 (Version 1)
Quarter: 2024Q3

REPORT INFORMATION
  Report Type: Spontaneous
  Country: BG (occurrence: BG)
  Receive Date: 20240722
  Receipt Date: 20240722
  Transmission Date: 20241016
  Serious: Yes (Hospitalization)
  Sender: CHEPLAPHARM
  Company Number: BG-CHEPLA-2024009007

PATIENT
  Age: 50 Year
  Sex: Female

DRUGS (6)
  1. OLANZAPINE [Suspect]
     Active Substance: OLANZAPINE
     Indication: Schizophrenia
     Dosage: 10 MG/DAILY?DAILY DOSE: 10 MILLIGRAM
     Dates: start: 2011
  2. QUETIAPINE [Concomitant]
     Active Substance: QUETIAPINE
     Indication: Schizophrenia
     Dosage: 400 MG/DAILY?DAILY DOSE: 400 MILLIGRAM
     Dates: start: 201104
  3. HALOPERIDOL [Concomitant]
     Active Substance: HALOPERIDOL
     Indication: Schizophrenia
  4. Flupentixol-depot [Concomitant]
     Indication: Schizophrenia
  5. BIPERIDEN [Concomitant]
     Active Substance: BIPERIDEN
     Indication: Schizophrenia
  6. CLOMIPRAMINE [Concomitant]
     Active Substance: CLOMIPRAMINE
     Indication: Schizophrenia
     Dosage: CLOMIPRAMINE FOR SEVERAL YEARS.

REACTIONS (1)
  - Self-injurious ideation [Recovering/Resolving]

NARRATIVE: CASE EVENT DATE: 20110101
